FAERS Safety Report 4275306-X (Version None)
Quarter: 2004Q1

REPORT INFORMATION
  Report Type: 
  Country: None (occurrence: None)
  Receive Date: 20040116
  Receipt Date: 20040106
  Transmission Date: 20041129
  Serious: No
  Sender: FDA-Public Use
  Company Number: 2003-BP-10479EX

PATIENT
  Age: 37 Year
  Sex: Male

DRUGS (16)
  1. PREDNISONE TAB [Suspect]
     Indication: RENAL TRANSPLANT
     Dosage: NR (5 MG), NR
     Dates: start: 20021202
  2. BMS224818 (BMS 224818-INVESTIGATIONAL) [Suspect]
     Indication: RENAL TRANSPLANT
     Dosage: NR (NR); IV
     Route: 042
     Dates: start: 20021018, end: 20021114
  3. CELLCEPT [Suspect]
     Indication: RENAL TRANSPLANT
     Dosage: 1500 (NR); PO
     Route: 048
     Dates: start: 20021016, end: 20031101
  4. TACROLIMUS (TACROLIMUS) [Suspect]
     Indication: RENAL TRANSPLANT
     Dosage: NR (NR), NR
     Dates: start: 20021202
  5. SIMULECT [Suspect]
     Indication: RENAL TRANSPLANT
     Dosage: NR (NR), NR
     Dates: start: 20021015, end: 20021019
  6. LASIX [Concomitant]
  7. DAPSONE [Concomitant]
  8. SYNTHROID [Concomitant]
  9. ALLOPURINOL [Concomitant]
  10. PROTONIX [Concomitant]
  11. VASOTEC [Concomitant]
  12. FOLIC ACID [Concomitant]
  13. STRESS TABS (VITAMINS WITH MINERALS) [Concomitant]
  14. K-POS (POTASSIUM PHOSPHATE MONOBASIC) [Concomitant]
  15. ARANESP [Concomitant]
  16. BICITRA (SHOHL'S SOLUTION) [Concomitant]

REACTIONS (15)
  - ANAEMIA [None]
  - CARCINOMA [None]
  - CELLULITIS [None]
  - DIARRHOEA [None]
  - DIFFUSE LARGE B-CELL LYMPHOMA [None]
  - HEADACHE [None]
  - HODGKIN'S DISEASE [None]
  - KIDNEY TRANSPLANT REJECTION [None]
  - LYMPHOPROLIFERATIVE DISORDER [None]
  - NEPHRITIS INTERSTITIAL [None]
  - OEDEMA PERIPHERAL [None]
  - PNEUMONIA [None]
  - PYREXIA [None]
  - TONGUE PARALYSIS [None]
  - URINARY TRACT INFECTION [None]
